FAERS Safety Report 24054846 (Version 2)
Quarter: 2024Q3

REPORT INFORMATION
  Report Type: Report from Study
  Country: DE (occurrence: DE)
  Receive Date: 20240705
  Receipt Date: 20240801
  Transmission Date: 20241016
  Serious: Yes (Hospitalization, Other)
  Sender: INSMED
  Company Number: DE-INSMED, INC.-2022-01666-DE

PATIENT
  Sex: Female

DRUGS (2)
  1. ARIKAYCE [Suspect]
     Active Substance: AMIKACIN
     Indication: Mycobacterium avium complex infection
     Dosage: 590 MILLIGRAM, QD
     Route: 055
     Dates: start: 20220613, end: 202209
  2. ARIKAYCE [Suspect]
     Active Substance: AMIKACIN
     Dosage: 590 MILLIGRAM, QOD
     Route: 055
     Dates: start: 202209, end: 20240720

REACTIONS (30)
  - Computerised tomogram abnormal [Not Recovered/Not Resolved]
  - Rehabilitation therapy [Unknown]
  - Throat irritation [Recovered/Resolved]
  - Gastrointestinal disorder [Recovered/Resolved]
  - Stomatitis [Unknown]
  - Sluggishness [Not Recovered/Not Resolved]
  - Increased viscosity of bronchial secretion [Not Recovered/Not Resolved]
  - Anaemia [Recovering/Resolving]
  - Coronavirus infection [Recovered/Resolved]
  - Peripheral swelling [Recovering/Resolving]
  - Renal impairment [Not Recovered/Not Resolved]
  - Dysgeusia [Recovered/Resolved]
  - Dysgeusia [Recovered/Resolved]
  - Dysgeusia [Recovered/Resolved]
  - Dry mouth [Unknown]
  - Productive cough [Recovered/Resolved]
  - Productive cough [Not Recovered/Not Resolved]
  - Vomiting [Recovered/Resolved]
  - Oropharyngeal pain [Not Recovered/Not Resolved]
  - Cough [Recovering/Resolving]
  - Dizziness [Recovered/Resolved]
  - Dizziness [Not Recovered/Not Resolved]
  - Nausea [Recovered/Resolved]
  - Nausea [Recovered/Resolved]
  - Balance disorder [Not Recovered/Not Resolved]
  - Dyspnoea [Recovering/Resolving]
  - Wrong technique in device usage process [Recovered/Resolved]
  - Accidental underdose [Unknown]
  - Drug ineffective [Unknown]
  - Intentional dose omission [Unknown]

NARRATIVE: CASE EVENT DATE: 20220101
